FAERS Safety Report 11106419 (Version 2)
Quarter: 2015Q2

REPORT INFORMATION
  Report Type: Spontaneous
  Country: SE (occurrence: SE)
  Receive Date: 20150512
  Receipt Date: 20150527
  Transmission Date: 20150821
  Serious: Yes (Other)
  Sender: FDA-Public Use
  Company Number: SE-PFIZER INC-2015159535

PATIENT
  Age: 25 Year
  Sex: Male

DRUGS (2)
  1. CHAMPIX [Suspect]
     Active Substance: VARENICLINE TARTRATE
     Indication: SMOKING CESSATION THERAPY
     Dosage: 1 MG, 2X/DAY
     Dates: start: 20141117, end: 2014
  2. CHAMPIX [Suspect]
     Active Substance: VARENICLINE TARTRATE
     Dosage: 1 MG, DAILY
     Dates: start: 201412, end: 20150112

REACTIONS (4)
  - Hallucination [Recovered/Resolved]
  - Amnesia [Recovered/Resolved]
  - Sleep disorder [Recovered/Resolved]
  - Verbal abuse [Unknown]

NARRATIVE: CASE EVENT DATE: 201412
